FAERS Safety Report 7904679-9 (Version None)
Quarter: 2011Q4

REPORT INFORMATION
  Report Type: 
  Country: None (occurrence: None)
  Receive Date: 20111109
  Receipt Date: 20110916
  Transmission Date: 20120403
  Serious: Yes (Other)
  Sender: FDA-Public Use
  Company Number: JP-GLAXOSMITHKLINE-B0749070A

PATIENT
  Age: 41 Year
  Sex: Female

DRUGS (3)
  1. DORAL [Concomitant]
     Route: 048
  2. PAXIL [Suspect]
     Indication: OBSESSIVE-COMPULSIVE DISORDER
     Dosage: 20MG PER DAY
     Route: 048
  3. ROZEREM [Concomitant]
     Route: 048

REACTIONS (4)
  - PLATELET AGGREGATION DECREASED [None]
  - HAEMORRHAGIC DIATHESIS [None]
  - METRORRHAGIA [None]
  - ANAEMIA [None]
